FAERS Safety Report 7059818-1 (Version None)
Quarter: 2010Q4

REPORT INFORMATION
  Report Type: 
  Country: None (occurrence: None)
  Receive Date: 20101025
  Receipt Date: 20101020
  Transmission Date: 20110411
  Serious: Yes (Other)
  Sender: FDA-Public Use
  Company Number: AU-PFIZER INC-2010134064

PATIENT
  Age: 25 Year
  Sex: Male

DRUGS (1)
  1. CHAMPIX [Suspect]
     Indication: SMOKING CESSATION THERAPY
     Dosage: UNK
     Dates: end: 20101017

REACTIONS (9)
  - ABNORMAL DREAMS [None]
  - ANXIETY [None]
  - FACIAL PAIN [None]
  - HEART RATE INCREASED [None]
  - HYPOAESTHESIA FACIAL [None]
  - INSOMNIA [None]
  - NECK PAIN [None]
  - PARAESTHESIA [None]
  - RASH [None]
